FAERS Safety Report 6398239-1 (Version None)
Quarter: 2009Q4

REPORT INFORMATION
  Report Type: 
  Country: None (occurrence: None)
  Receive Date: 20091013
  Receipt Date: 20091001
  Transmission Date: 20100525
  Serious: Yes (Other)
  Sender: FDA-Public Use
  Company Number: PHEH2009US12648

PATIENT
  Sex: Male

DRUGS (3)
  1. ZOMETA [Suspect]
     Route: 048
  2. REVLIMID [Suspect]
     Indication: MULTIPLE MYELOMA
     Dosage: 25 MG, QD
     Route: 048
     Dates: start: 20081022
  3. ASPIRIN [Concomitant]

REACTIONS (2)
  - OSTEONECROSIS [None]
  - TOOTH DISORDER [None]
